FAERS Safety Report 8738511 (Version 3)
Quarter: 2013Q1

REPORT INFORMATION
  Report Type: Report from Study
  Country: US (occurrence: US)
  Receive Date: 20120823
  Receipt Date: 20130225
  Transmission Date: 20140127
  Serious: Yes (Other)
  Sender: FDA-Public Use
  Company Number: US-009507513-1208USA008143

PATIENT
  Age: 70 None
  Sex: Female

DRUGS (13)
  1. TAFLUPROST [Suspect]
     Indication: OCULAR HYPERTENSION
     Dosage: 1.00 GTT, QD
     Route: 047
     Dates: start: 20120801, end: 20120802
  2. STUDY DRUG (UNSPECIFIED) [Suspect]
     Indication: OCULAR HYPERTENSION
     Dosage: 1 GTT, QD
     Route: 047
     Dates: start: 20120801, end: 20120802
  3. DORZOLAMIDE HYDROCHLORIDE [Concomitant]
  4. ACETAMINOPHEN [Concomitant]
  5. LISINOPRIL [Concomitant]
  6. ISOSORBIDE [Concomitant]
  7. ASPIRIN [Concomitant]
  8. OMEPRAZOLE [Concomitant]
  9. AMLODIPINE [Concomitant]
  10. ATENOLOL [Concomitant]
  11. PIOGLITAZONE HYDROCHLORIDE [Concomitant]
  12. ATORVASTATIN [Concomitant]
  13. INSULIN [Concomitant]

REACTIONS (1)
  - Anterior chamber flare [Recovered/Resolved]
